FAERS Safety Report 9635578 (Version 1)
Quarter: 2013Q4

REPORT INFORMATION
  Report Type: Spontaneous
  Country: US (occurrence: US)
  Receive Date: 20131021
  Receipt Date: 20131021
  Transmission Date: 20140711
  Serious: No
  Sender: FDA-Public Use
  Company Number: US-PURDUE-USA-2013-0103687

PATIENT
  Age: 37 Year
  Sex: Male

DRUGS (2)
  1. BUTRANS [Suspect]
     Indication: BACK PAIN
     Dosage: 5 MCG/HR, UNK
     Route: 062
  2. PERCOCET                           /00867901/ [Concomitant]
     Indication: BACK PAIN
     Dosage: 5 MG, 3-4 TIMES DAILY
     Route: 048

REACTIONS (1)
  - Drug effect decreased [Unknown]
